FAERS Safety Report 10130322 (Version 2)
Quarter: 2014Q2

REPORT INFORMATION
  Report Type: Spontaneous
  Country: IE (occurrence: IE)
  Receive Date: 20140428
  Receipt Date: 20140607
  Transmission Date: 20141212
  Serious: No
  Sender: FDA-Public Use
  Company Number: IE-AMGEN-IRLSP2014029837

PATIENT
  Age: 49 Year
  Sex: Female
  Weight: 63 kg

DRUGS (4)
  1. NEUPOGEN [Suspect]
     Indication: PRODUCT USED FOR UNKNOWN INDICATION
     Dosage: 30, UNK, O/W (EVERY OTHER WEEK)
     Route: 058
     Dates: start: 20140416
  2. PEGASYS [Concomitant]
     Dosage: UNK
  3. METHADONE [Concomitant]
     Dosage: UNK
  4. COPEGUS [Concomitant]
     Dosage: UNK

REACTIONS (10)
  - Urticaria [Recovering/Resolving]
  - Rash generalised [Recovering/Resolving]
  - Pruritus [Recovering/Resolving]
  - Wheezing [Recovering/Resolving]
  - Erythema [Recovering/Resolving]
  - Drug eruption [Recovering/Resolving]
  - Dyspnoea [Recovering/Resolving]
  - Skin reaction [Recovering/Resolving]
  - White blood cell count abnormal [Unknown]
  - Platelet count abnormal [Unknown]
